FAERS Safety Report 6172884-0 (Version None)
Quarter: 2009Q2

REPORT INFORMATION
  Report Type: 
  Country: None (occurrence: None)
  Receive Date: 20090428
  Receipt Date: 20090421
  Transmission Date: 20091009
  Serious: Yes (Life-Threatening)
  Sender: FDA-Public Use
  Company Number: 2009JP001676

PATIENT
  Age: 66 Year
  Sex: Female
  Weight: 65 kg

DRUGS (4)
  1. FUNGUARD(MICAFUNGIN) INJECTION [Suspect]
     Indication: FUNGAL INFECTION
     Dosage: 300 MG, UID/QD, IV DRIP
     Route: 041
     Dates: start: 20081022, end: 20081029
  2. SEVOFLURANE [Concomitant]
  3. TARGOCID [Concomitant]
  4. ZYVOX [Concomitant]

REACTIONS (5)
  - DIALYSIS [None]
  - DISSEMINATED INTRAVASCULAR COAGULATION [None]
  - GENERAL PHYSICAL HEALTH DETERIORATION [None]
  - ORGANISING PNEUMONIA [None]
  - RENAL IMPAIRMENT [None]
